FAERS Safety Report 11067540 (Version 1)
Quarter: 2015Q2

REPORT INFORMATION
  Report Type: Spontaneous
  Country: US (occurrence: US)
  Receive Date: 20150427
  Receipt Date: 20150427
  Transmission Date: 20150821
  Serious: No
  Sender: FDA-Public Use
  Company Number: US-TEVA-533064USA

PATIENT
  Sex: Female

DRUGS (1)
  1. CEFALEXIN [Suspect]
     Active Substance: CEPHALEXIN
     Indication: PRODUCT USED FOR UNKNOWN INDICATION
     Dosage: 1000 MILLIGRAM DAILY;
     Dates: start: 20141231

REACTIONS (3)
  - Malaise [Unknown]
  - Urticaria [Unknown]
  - Pruritus [Unknown]
